FAERS Safety Report 6063129-0 (Version None)
Quarter: 2009Q1

REPORT INFORMATION
  Report Type: 
  Country: None (occurrence: None)
  Receive Date: 20090203
  Receipt Date: 20090202
  Transmission Date: 20090719
  Serious: Yes (Other)
  Sender: FDA-Public Use
  Company Number: US-BAYER-200814333BCC

PATIENT
  Age: 45 Year
  Sex: Female
  Weight: 73 kg

DRUGS (7)
  1. ALEVE (CAPLET) [Suspect]
     Indication: ANALGESIA
     Dosage: TOTAL DAILY DOSE: 440 MG  UNIT DOSE: 220 MG
  2. ALEVE [Suspect]
     Indication: ANALGESIA
  3. CAFFEINE [Concomitant]
  4. LYRICA [Concomitant]
  5. IRON [Concomitant]
  6. CALTRATE [Concomitant]
  7. TRAMADOL HCL [Concomitant]

REACTIONS (1)
  - RECTAL HAEMORRHAGE [None]
